FAERS Safety Report 9187186 (Version 2)
Quarter: 2013Q1

REPORT INFORMATION
  Report Type: Spontaneous
  Country: US (occurrence: US)
  Receive Date: 20130325
  Receipt Date: 20130329
  Transmission Date: 20140127
  Serious: No
  Sender: FDA-Public Use
  Company Number: US-009507513-1303USA010390

PATIENT
  Sex: Female
  Weight: 54.42 kg

DRUGS (3)
  1. MIRALAX [Suspect]
     Indication: CONSTIPATION
     Dosage: 17 G, QPM
     Route: 048
     Dates: start: 2011
  2. SENNA [Concomitant]
     Indication: CONSTIPATION
     Dosage: UNK, Q3W
  3. FLAXSEED [Concomitant]
     Indication: CONSTIPATION
     Dosage: UNK, UNKNOWN

REACTIONS (2)
  - Choking [Unknown]
  - Incorrect drug administration duration [Unknown]
